FAERS Safety Report 7466162-7 (Version None)
Quarter: 2011Q2

REPORT INFORMATION
  Report Type: 
  Country: None (occurrence: None)
  Receive Date: 20110509
  Receipt Date: 20110427
  Transmission Date: 20111010
  Serious: Yes (Disabling, Other)
  Sender: FDA-Public Use
  Company Number: PHHY2011US35787

PATIENT

DRUGS (2)
  1. TASIGNA [Suspect]
     Indication: CHRONIC MYELOID LEUKAEMIA
     Dosage: 300 MG, BID
     Route: 048
     Dates: start: 20110226
  2. ALLOPURINOL [Concomitant]
     Dosage: 100 MG, TID
     Route: 048
     Dates: start: 20110226

REACTIONS (2)
  - RASH [None]
  - PRURITUS [None]
